FAERS Safety Report 4299478-6 (Version None)
Quarter: 2004Q1

REPORT INFORMATION
  Report Type: 
  Country: None (occurrence: None)
  Receive Date: 20040217
  Receipt Date: 20040205
  Transmission Date: 20041129
  Serious: Yes (Death, Hospitalization)
  Sender: FDA-Public Use
  Company Number: 163-20785-03090596

PATIENT
  Age: 94 Year
  Sex: Male

DRUGS (4)
  1. THALOMID [Suspect]
     Indication: MYELODYSPLASTIC SYNDROME
     Dosage: 50 MG, QHS, ORAL
     Route: 048
     Dates: start: 20030819, end: 20030914
  2. CARDIZEM [Concomitant]
  3. CARDURA [Concomitant]
  4. DIGOXIN [Concomitant]

REACTIONS (2)
  - BLOOD PRESSURE INCREASED [None]
  - MYOCARDIAL INFARCTION [None]
